FAERS Safety Report 5711314-7 (Version None)
Quarter: 2008Q2

REPORT INFORMATION
  Report Type: 
  Country: None (occurrence: None)
  Receive Date: 20080418
  Receipt Date: 20080418
  Transmission Date: 20081010
  Serious: Yes (Hospitalization)
  Sender: FDA-Public Use
  Company Number: None

PATIENT
  Age: 71 Year
  Sex: Male
  Weight: 61.9 kg

DRUGS (2)
  1. GEMFIBROZIL [Suspect]
     Indication: HYPERCHOLESTEROLAEMIA
     Dosage: 600MG BID PO
     Route: 048
     Dates: start: 20050825, end: 20080407
  2. LOVASTATIN [Suspect]
     Indication: HYPERTRIGLYCERIDAEMIA
     Dosage: 80MG EVERY DAY PO
     Route: 048
     Dates: start: 20070328, end: 20080407

REACTIONS (1)
  - MYOSITIS [None]
